FAERS Safety Report 14067896 (Version 2)
Quarter: 2018Q1

REPORT INFORMATION
  Report Type: Spontaneous
  Country: FR (occurrence: FR)
  Receive Date: 20171010
  Receipt Date: 20180206
  Transmission Date: 20180508
  Serious: Yes (Other)
  Sender: FDA-Public Use
  Company Number: FR-ASTRAZENECA-2017SF02662

PATIENT
  Sex: Female

DRUGS (2)
  1. OSIMERTINIB. [Suspect]
     Active Substance: OSIMERTINIB
     Route: 048
  2. OSIMERTINIB. [Suspect]
     Active Substance: OSIMERTINIB
     Route: 048

REACTIONS (5)
  - Communication disorder [Recovering/Resolving]
  - Mental disorder [Recovering/Resolving]
  - Metastases to central nervous system [Recovering/Resolving]
  - Metastases to meninges [Recovering/Resolving]
  - Off label use [Not Recovered/Not Resolved]
